FAERS Safety Report 6522881-8 (Version None)
Quarter: 2009Q4

REPORT INFORMATION
  Report Type: 
  Country: None (occurrence: None)
  Receive Date: 20091222
  Receipt Date: 20091207
  Transmission Date: 20100525
  Serious: Yes (Other)
  Sender: FDA-Public Use
  Company Number: 456575

PATIENT
  Age: 60 Year
  Sex: Male

DRUGS (18)
  1. PAMISOL DISODIUM PAMIDRONATE 15MG/5ML INJECTION VIAL (DISODIUM PAMIDRO [Suspect]
     Indication: MULTIPLE MYELOMA
     Dosage: 90 MG
     Dates: start: 20070509, end: 20070725
  2. ADCAL-D3 [Concomitant]
  3. ALENDRONIC ACID [Concomitant]
  4. ALLOPURINOL [Concomitant]
  5. CO-TRIMOXAZOLE [Concomitant]
  6. DEXEMETHASONE [Concomitant]
  7. DIGOXIN [Concomitant]
  8. EZETIMIBE [Concomitant]
  9. FLUCONAZOLE [Concomitant]
  10. FURSEMIDE /00032601/ [Concomitant]
  11. GRANISETRON [Concomitant]
  12. METOCLOPRAMIDE [Concomitant]
  13. MORPHINE [Concomitant]
  14. MOVICOL /01053601/ [Concomitant]
  15. OMEPRAZOLE [Concomitant]
  16. SIMVASTATIN [Concomitant]
  17. THALIDOMIDE [Concomitant]
  18. WARFARIN SODIUM [Concomitant]

REACTIONS (3)
  - BONE DISORDER [None]
  - OSTEONECROSIS [None]
  - PAIN [None]
